FAERS Safety Report 8410063 (Version 2)
Quarter: 2013Q2

REPORT INFORMATION
  Report Type: Spontaneous
  Country: US (occurrence: None)
  Receive Date: 20111227
  Receipt Date: 20120426
  Transmission Date: 20140414
  Serious: Yes (Other)
  Sender: FDA-Public Use
  Company Number: PHEH2011US07321

PATIENT
  Age: 52 Year
  Sex: Female

DRUGS (5)
  1. GILENYA [Suspect]
     Indication: MULTIPLE SCLEROSIS
     Dosage: 0.5 MG, QD, ORAL
     Route: 048
     Dates: start: 20111003
  2. AMBIEN [Concomitant]
  3. NORTRIPTYLINE HYDROCHLORIDE [Concomitant]
  4. CLONAZEPAM [Concomitant]
  5. CITALOPRAM HYDROBROMIDE [Concomitant]

REACTIONS (5)
  - FATIGUE [None]
  - BLOOD PRESSURE DECREASED [None]
  - SOMNOLENCE [None]
  - HEART RATE DECREASED [None]
  - DIZZINESS [None]
